FAERS Safety Report 8875746 (Version 1)
Quarter: 2012Q4

REPORT INFORMATION
  Report Type: 
  Country: GB (occurrence: GB)
  Receive Date: 20121030
  Receipt Date: 20121030
  Transmission Date: 20130627
  Serious: Yes (Other)
  Sender: FDA-Public Use
  Company Number: GB-TEVA-365492ISR

PATIENT
  Age: 81 Year
  Sex: Male

DRUGS (6)
  1. TRIMETHOPRIM [Suspect]
     Indication: URINARY TRACT INFECTION
     Route: 048
     Dates: start: 20120822
  2. CALCIUM AND COLECALCIFEROL [Concomitant]
     Indication: OSTEOPOROSIS PROPHYLAXIS
     Route: 048
     Dates: start: 20120106
  3. TAMSULOSIN [Concomitant]
     Indication: PROSTATISM
     Route: 048
     Dates: start: 20121001
  4. BISOPROLOL [Concomitant]
     Indication: ATRIAL FIBRILLATION
     Dosage: Started at least since 29/11/2007, still taking
     Route: 048
  5. WARFARIN [Concomitant]
     Indication: ATRIAL FIBRILLATION
     Dosage: Dose INR dependent. Started at least since 29/11/2007, still taking
     Route: 048
  6. OMEPRAZOLE [Concomitant]
     Indication: HIATUS HERNIA
     Dosage: Started at least since 29/11/2007, still taking.
     Route: 048

REACTIONS (2)
  - Anxiety [Recovered/Resolved]
  - Mood altered [Unknown]
